FAERS Safety Report 8288320-4 (Version None)
Quarter: 2012Q2

REPORT INFORMATION
  Report Type: 
  Country: None (occurrence: None)
  Receive Date: 20120416
  Receipt Date: 20120408
  Transmission Date: 20120825
  Serious: No
  Sender: FDA-Public Use
  Company Number: US-BAYER-2012-036091

PATIENT

DRUGS (3)
  1. ALEVE (CAPLET) [Suspect]
     Indication: ARTHRALGIA
     Dosage: 2 DF, UNK
     Route: 048
  2. IBUPROFEN [Concomitant]
     Indication: ARTHRALGIA
     Dosage: 2 DF, UNK
  3. LORTAB [Concomitant]
     Indication: ARTHRALGIA
     Dosage: 1 DF, UNK

REACTIONS (1)
  - ARTHRALGIA [None]
